FAERS Safety Report 13532973 (Version 1)
Quarter: 2017Q2

REPORT INFORMATION
  Report Type: Spontaneous
  Country: FR (occurrence: FR)
  Receive Date: 20170510
  Receipt Date: 20170510
  Transmission Date: 20170830
  Serious: Yes (Other)
  Sender: FDA-Public Use
  Company Number: FR-SA-2017SA082923

PATIENT
  Age: 59 Year
  Sex: Female

DRUGS (15)
  1. IRON [Concomitant]
     Active Substance: IRON
     Dates: start: 201703
  2. IFOSFAMIDE. [Suspect]
     Active Substance: IFOSFAMIDE
     Indication: OSTEOSARCOMA
     Dosage: 4480 MG D1, D2
     Route: 042
     Dates: start: 20170227, end: 20170303
  3. GENTAMICIN. [Concomitant]
     Active Substance: GENTAMICIN
     Dates: start: 201703, end: 20170322
  4. PANTOPRAZOLE [Concomitant]
     Active Substance: PANTOPRAZOLE
     Dates: start: 201703
  5. METOCLOPRAMIDE. [Concomitant]
     Active Substance: METOCLOPRAMIDE
     Dates: start: 201703
  6. LOVENOX [Suspect]
     Active Substance: ENOXAPARIN SODIUM
     Route: 058
     Dates: start: 20170322
  7. CLOXACILLIN [Suspect]
     Active Substance: CLOXACILLIN
     Route: 065
     Dates: start: 20170313, end: 20170330
  8. DUROGESIC [Suspect]
     Active Substance: FENTANYL
     Indication: PAIN
     Dosage: ROUTE: TRD
     Dates: start: 2017
  9. PHOSPHONEUROS [Concomitant]
     Active Substance: CALCIUM PHOSPHATE, DIBASIC, ANHYDROUS\MAGNESIUM GLYCEROPHOSPHATE\PHOSPHORIC ACID\SODIUM PHOSPHATE, DIBASIC
     Dates: start: 201703
  10. DOXORUBICIN [Suspect]
     Active Substance: DOXORUBICIN
     Indication: OSTEOSARCOMA
     Dosage: 90 MG D1
     Route: 042
     Dates: start: 20170227, end: 20170303
  11. BROMAZEPAM [Suspect]
     Active Substance: BROMAZEPAM
     Route: 048
     Dates: start: 20170322
  12. FOLIC ACID. [Concomitant]
     Active Substance: FOLIC ACID
     Dates: start: 201703
  13. CISPLATIN. [Suspect]
     Active Substance: CISPLATIN
     Indication: OSTEOSARCOMA
     Dosage: 149 MG D4
     Route: 042
     Dates: start: 20170227, end: 20170303
  14. PARACETAMOL [Concomitant]
     Active Substance: ACETAMINOPHEN
     Dates: start: 201703
  15. DIFFU K [Concomitant]
     Active Substance: POTASSIUM CHLORIDE
     Dates: start: 201703

REACTIONS (1)
  - Organising pneumonia [Not Recovered/Not Resolved]

NARRATIVE: CASE EVENT DATE: 20170331
